FAERS Safety Report 12548996 (Version 1)
Quarter: 2016Q3

REPORT INFORMATION
  Report Type: Spontaneous
  Country: DE (occurrence: DE)
  Receive Date: 20160712
  Receipt Date: 20160712
  Transmission Date: 20161109
  Serious: Yes (Other)
  Sender: FDA-Public Use
  Company Number: DE-009507513-1607DEU004300

PATIENT
  Sex: Female

DRUGS (1)
  1. LOVELLE [Suspect]
     Active Substance: DESOGESTREL\ETHINYL ESTRADIOL
     Indication: CONTRACEPTION
     Dosage: UNK, QD
     Route: 048
     Dates: end: 20160707

REACTIONS (1)
  - Gastric cancer [Recovering/Resolving]
